FAERS Safety Report 8044162-6 (Version None)
Quarter: 2012Q1

REPORT INFORMATION
  Report Type: 
  Country: None (occurrence: None)
  Receive Date: 20120113
  Receipt Date: 20120106
  Transmission Date: 20120608
  Serious: Yes (Other)
  Sender: FDA-Public Use
  Company Number: US-BRISTOL-MYERS SQUIBB COMPANY-15851868

PATIENT
  Age: 46 Year
  Sex: Female
  Weight: 47 kg

DRUGS (2)
  1. MORPHINE [Concomitant]
  2. IPILIMUMAB [Suspect]
     Indication: MALIGNANT MELANOMA
     Dosage: C4:26MAY11 CYC:21 DAYS. 10MG/KG IV OVER 90MIN ON DAY 1.
     Route: 042
     Dates: start: 20110323

REACTIONS (1)
  - ABDOMINAL PAIN [None]
